FAERS Safety Report 22653801 (Version 1)
Quarter: 2023Q2

REPORT INFORMATION
  Report Type: Spontaneous
  Country: US (occurrence: None)
  Receive Date: 20230628
  Receipt Date: 20230628
  Transmission Date: 20230721
  Serious: Yes (Death)
  Sender: FDA-Public Use
  Company Number: None

PATIENT
  Age: 62 Year
  Sex: Male
  Weight: 39.46 kg

DRUGS (1)
  1. LUMASON [Suspect]
     Active Substance: SULFUR HEXAFLUORIDE

REACTIONS (4)
  - Vomiting [None]
  - Incorrect drug administration rate [None]
  - Incorrect dose administered [None]
  - Cardio-respiratory arrest [None]

NARRATIVE: CASE EVENT DATE: 20230620
